FAERS Safety Report 7632169-X (Version None)
Quarter: 2011Q3

REPORT INFORMATION
  Report Type: 
  Country: None (occurrence: None)
  Receive Date: 20110725
  Receipt Date: 20110524
  Transmission Date: 20111222
  Serious: No
  Sender: FDA-Public Use
  Company Number: US-BRISTOL-MYERS SQUIBB COMPANY-15773161

PATIENT
  Age: 67 Year
  Sex: Male

DRUGS (6)
  1. SPIRIVA [Concomitant]
  2. ADVAIR DISKUS 100/50 [Concomitant]
  3. COUMADIN [Suspect]
     Indication: THROMBOSIS
     Dosage: DOSE REDUCED TO 6.5MG
  4. COZAAR [Concomitant]
  5. METOPROLOL TARTRATE [Concomitant]
  6. NORVASC [Concomitant]

REACTIONS (1)
  - INTERNATIONAL NORMALISED RATIO FLUCTUATION [None]
